FAERS Safety Report 5871911-5 (Version None)
Quarter: 2008Q3

REPORT INFORMATION
  Report Type: 
  Country: None (occurrence: None)
  Receive Date: 20080905
  Receipt Date: 20080821
  Transmission Date: 20090109
  Serious: Yes (Hospitalization)
  Sender: FDA-Public Use
  Company Number: GB-BAYER-200825019GPV

PATIENT
  Age: 33 Year
  Sex: Female

DRUGS (10)
  1. ERYTHROMYCIN [Suspect]
     Indication: PREMATURE RUPTURE OF MEMBRANES
     Dosage: TOTAL DAILY DOSE: 1000 MG
     Route: 065
  2. NIFEDIPINE [Suspect]
     Indication: TOCOLYSIS
     Route: 060
  3. NIFEDIPINE [Suspect]
     Dosage: TOTAL DAILY DOSE: 120 MG
     Route: 065
  4. NIFEDIPINE [Suspect]
  5. CIPROFLOXACIN [Suspect]
     Indication: URINARY TRACT INFECTION
     Route: 065
  6. ASPIRIN [Concomitant]
     Indication: THROMBOSIS PROPHYLAXIS
     Route: 065
  7. FRAGMIN [Concomitant]
     Indication: THROMBOSIS PROPHYLAXIS
     Route: 065
  8. ATOSIBAN [Concomitant]
     Indication: ABDOMINAL PAIN
     Route: 065
  9. ATOSIBAN [Concomitant]
     Route: 065
  10. BETAMETHASONE [Concomitant]
     Indication: DRUG USE FOR UNKNOWN INDICATION
     Route: 065

REACTIONS (1)
  - PREMATURE BABY [None]
